FAERS Safety Report 9431471 (Version 1)
Quarter: 2013Q3

REPORT INFORMATION
  Report Type: Spontaneous
  Country: JP (occurrence: JP)
  Receive Date: 20130730
  Receipt Date: 20130730
  Transmission Date: 20140515
  Serious: No
  Sender: FDA-Public Use
  Company Number: JP-SUCAMPO PHARMA AMERICAS, INC-SPI201300539

PATIENT
  Age: 53 Year
  Sex: Female

DRUGS (4)
  1. AMITIZA [Suspect]
     Indication: IRRITABLE BOWEL SYNDROME
     Dosage: 24 MCG, BID
     Route: 048
     Dates: start: 20130717, end: 201307
  2. GASCON [Concomitant]
     Indication: IRRITABLE BOWEL SYNDROME
     Dosage: 80 MG, TID
     Route: 048
     Dates: start: 20070404
  3. GRANDAXIN [Concomitant]
     Indication: IRRITABLE BOWEL SYNDROME
     Dosage: 50 MG, TID
     Route: 048
     Dates: start: 20130619
  4. LAXOBERON [Concomitant]
     Indication: IRRITABLE BOWEL SYNDROME
     Dosage: 15 ML, QD
     Route: 048
     Dates: start: 20030901

REACTIONS (1)
  - Dyspnoea [None]
